FAERS Safety Report 5081961-7 (Version None)
Quarter: 2006Q3

REPORT INFORMATION
  Report Type: 
  Country: None (occurrence: None)
  Receive Date: 20060811
  Receipt Date: 20060725
  Transmission Date: 20061208
  Serious: Yes (Hospitalization)
  Sender: FDA-Public Use
  Company Number: 228248

PATIENT
  Age: 57 Year
  Sex: Female

DRUGS (11)
  1. AVASTIN [Suspect]
     Indication: COLON CANCER
     Dosage: 775 MG, Q3W, INTRAVENOUS
     Route: 042
     Dates: start: 20060109, end: 20060626
  2. CAPECITABINE(CAPECITABINE) [Suspect]
     Indication: COLON CANCER
     Dosage: 2000 MG, ORAL
     Route: 048
     Dates: start: 20060109
  3. OXALIPLATIN [Suspect]
     Indication: COLON CANCER
     Dosage: 260 MG, Q3W, INTRAVENOUS
     Route: 042
     Dates: start: 20060109
  4. ONDANSETRON [Concomitant]
  5. PANTOPRAZOLE SODIUM [Concomitant]
  6. FLUOXETINE [Concomitant]
  7. BENZODIAZEPINE (BENZODIAZEPINE) [Concomitant]
  8. ZOLPIDEM TARTRATE [Concomitant]
  9. BENFLUOREX (BENFLUOREX) [Concomitant]
  10. FENOFIBRATE [Concomitant]
  11. HISTAMINE PHOSPHATE (HISTAMINE PHOSPHATE) [Concomitant]

REACTIONS (1)
  - DIVERTICULITIS [None]
